FAERS Safety Report 6856556-2 (Version None)
Quarter: 2010Q3

REPORT INFORMATION
  Report Type: 
  Country: None (occurrence: None)
  Receive Date: 20100719
  Receipt Date: 20100715
  Transmission Date: 20110219
  Serious: No
  Sender: FDA-Public Use
  Company Number: US-TEVA-241045USA

PATIENT
  Sex: Female
  Weight: 56.75 kg

DRUGS (2)
  1. SALBUTAMOL SULFATE INHALATION, 0.09 MG [Suspect]
     Indication: ASTHMA
     Route: 055
  2. SERETIDE                           /01420901/ [Concomitant]

REACTIONS (2)
  - COUGH [None]
  - DRUG INEFFECTIVE [None]
